FAERS Safety Report 15962845 (Version 1)
Quarter: 2019Q1

REPORT INFORMATION
  Report Type: Report from Study
  Country: ES (occurrence: ES)
  Receive Date: 20190214
  Receipt Date: 20190214
  Transmission Date: 20190417
  Serious: Yes (Other)
  Sender: FDA-Public Use
  Company Number: ES-JNJFOC-20190139212

PATIENT

DRUGS (2)
  1. USTEKINUMAB [Suspect]
     Active Substance: USTEKINUMAB
     Indication: CROHN^S DISEASE
     Route: 042
  2. USTEKINUMAB [Suspect]
     Active Substance: USTEKINUMAB
     Indication: CROHN^S DISEASE
     Dosage: WEEK 0
     Route: 042

REACTIONS (28)
  - Clostridial infection [Unknown]
  - Aphthous ulcer [Unknown]
  - Septic shock [Unknown]
  - Nausea [Unknown]
  - Alopecia [Unknown]
  - Tonsillitis [Unknown]
  - Prostatitis [Unknown]
  - Arthralgia [Unknown]
  - Abdominal pain [Unknown]
  - Pruritus [Unknown]
  - Pyrexia [Unknown]
  - Pneumonia [Unknown]
  - Psoas abscess [Unknown]
  - Escherichia infection [Unknown]
  - Influenza [Unknown]
  - Subileus [Unknown]
  - Nasopharyngitis [Unknown]
  - Headache [Unknown]
  - Campylobacter infection [Unknown]
  - Fatigue [Unknown]
  - Anal abscess [Unknown]
  - Psoriasis [Unknown]
  - Abscess [Unknown]
  - Pharyngotonsillitis [Unknown]
  - Klebsiella infection [Unknown]
  - Injection site reaction [Unknown]
  - Skin reaction [Unknown]
  - Influenza like illness [Unknown]
